FAERS Safety Report 12844336 (Version 1)
Quarter: 2016Q4

REPORT INFORMATION
  Report Type: Spontaneous
  Country: US (occurrence: US)
  Receive Date: 20161012
  Receipt Date: 20161012
  Transmission Date: 20170207
  Serious: Yes (Other)
  Sender: FDA-Public Use
  Company Number: None

PATIENT
  Age: 73 Year
  Sex: Female
  Weight: 65.25 kg

DRUGS (14)
  1. CALCIUM+VITAMIN D [Concomitant]
     Active Substance: CALCIUM\VITAMIN D
  2. FISH OIL [Concomitant]
     Active Substance: FISH OIL
  3. TAMOXIFIN [Suspect]
     Active Substance: TAMOXIFEN
     Indication: BREAST CANCER
     Dosage: ?          QUANTITY:1 TABLET(S);?
     Route: 048
  4. ZYPREXA [Concomitant]
     Active Substance: OLANZAPINE
  5. VITAMIN C [Concomitant]
     Active Substance: ASCORBIC ACID
  6. GABAPENTIN. [Concomitant]
     Active Substance: GABAPENTIN
  7. VENLAFAXINE [Concomitant]
     Active Substance: VENLAFAXINE HYDROCHLORIDE
  8. LEVOTHYROXINE. [Concomitant]
     Active Substance: LEVOTHYROXINE
  9. FEMARA [Concomitant]
     Active Substance: LETROZOLE
  10. VITAMIN D [Concomitant]
     Active Substance: CHOLECALCIFEROL
  11. TRAZODONE [Concomitant]
     Active Substance: TRAZODONE HYDROCHLORIDE
  12. MVI [Concomitant]
     Active Substance: VITAMINS
  13. VITIAMIN B12 [Concomitant]
  14. HYALURONIC ACID [Concomitant]
     Active Substance: HYALURONIC ACID

REACTIONS (2)
  - Dyspnoea [None]
  - Pulmonary thrombosis [None]

NARRATIVE: CASE EVENT DATE: 20161006
